FAERS Safety Report 6038128-5 (Version None)
Quarter: 2009Q1

REPORT INFORMATION
  Report Type: 
  Country: None (occurrence: None)
  Receive Date: 20090113
  Receipt Date: 20090113
  Transmission Date: 20090719
  Serious: No
  Sender: FDA-Public Use
  Company Number: None

PATIENT
  Age: 38 Year
  Sex: Female
  Weight: 94.8018 kg

DRUGS (1)
  1. ADENOSINE [Suspect]

REACTIONS (1)
  - ACNE [None]
